FAERS Safety Report 7714940-9 (Version None)
Quarter: 2011Q3

REPORT INFORMATION
  Report Type: 
  Country: None (occurrence: None)
  Receive Date: 20110829
  Receipt Date: 20110203
  Transmission Date: 20111222
  Serious: No
  Sender: FDA-Public Use
  Company Number: US-GLAXOSMITHKLINE-A0911692A

PATIENT
  Age: 50 Year
  Sex: Female

DRUGS (2)
  1. ACYCLOVIR [Suspect]
     Indication: HERPES ZOSTER
     Route: 048
     Dates: start: 20030101
  2. PERCOCET [Concomitant]

REACTIONS (1)
  - DRUG INEFFECTIVE [None]
